FAERS Safety Report 23266245 (Version 1)
Quarter: 2023Q4

REPORT INFORMATION
  Report Type: Spontaneous
  Country: US (occurrence: US)
  Receive Date: 20231206
  Receipt Date: 20231206
  Transmission Date: 20240109
  Serious: No
  Sender: FDA-Public Use
  Company Number: None

PATIENT
  Age: 65 Year
  Sex: Male

DRUGS (6)
  1. BACLOFEN [Suspect]
     Active Substance: BACLOFEN
     Indication: Glossopharyngeal neuralgia
     Dosage: UNK (TITRATED OFF)
     Route: 065
     Dates: start: 2018
  2. BACLOFEN [Suspect]
     Active Substance: BACLOFEN
     Dosage: UNK
     Route: 065
  3. GABAPENTIN [Suspect]
     Active Substance: GABAPENTIN
     Indication: Glossopharyngeal neuralgia
     Dosage: UNK (HIGHER DOSES; TITRATED OFF )
     Route: 065
     Dates: start: 2015
  4. GABAPENTIN [Suspect]
     Active Substance: GABAPENTIN
     Dosage: UNK (TITRATED OFF)
     Route: 065
     Dates: start: 2018
  5. GABAPENTIN [Suspect]
     Active Substance: GABAPENTIN
     Dosage: UNK (WEAR OFF)
     Route: 065
  6. OXCARBAZEPINE [Suspect]
     Active Substance: OXCARBAZEPINE
     Indication: Glossopharyngeal neuralgia
     Dosage: UNK (HIGHER DOSES; TITRATED OFF)
     Route: 065
     Dates: start: 2015

REACTIONS (3)
  - Fatigue [Recovered/Resolved]
  - Therapy partial responder [Unknown]
  - Off label use [Unknown]
